FAERS Safety Report 21987408 (Version 1)
Quarter: 2023Q1

REPORT INFORMATION
  Report Type: Spontaneous
  Country: GB (occurrence: GB)
  Receive Date: 20230214
  Receipt Date: 20230214
  Transmission Date: 20230417
  Serious: No
  Sender: FDA-Public Use
  Company Number: None

PATIENT
  Age: 83 Year
  Sex: Female
  Weight: 64 kg

DRUGS (15)
  1. CEPHALEXIN [Suspect]
     Active Substance: CEPHALEXIN
     Indication: Ill-defined disorder
     Dosage: UNK
     Route: 065
     Dates: start: 20220524
  2. ACIDEX ADVANCE HEARTBURN AND INDIGESTION RELIEF [Concomitant]
     Indication: Product used for unknown indication
     Dosage: 5ML - 10ML 4 TIMES/DAY
     Route: 065
     Dates: start: 20210428
  3. BETAMETHASONE DIPROPIONATE [Concomitant]
     Active Substance: BETAMETHASONE DIPROPIONATE
     Indication: Ill-defined disorder
     Dosage: APPLY ONCE DAILY FOR 4 WEEKS (UNDER OCCLUSION I...
     Route: 065
     Dates: start: 20201216
  4. CLOTRIMAZOLE [Concomitant]
     Active Substance: CLOTRIMAZOLE
     Indication: Ill-defined disorder
     Dosage: APPLY TWICE DAILY
     Route: 065
     Dates: start: 20220421, end: 20220428
  5. AMOXICILLIN\CLAVULANATE POTASSIUM [Concomitant]
     Active Substance: AMOXICILLIN\CLAVULANATE POTASSIUM
     Indication: Ill-defined disorder
     Dosage: TAKE ONE 3 TIMES/DAY FOR 7 DAYS
     Route: 065
     Dates: start: 20220329, end: 20220405
  6. COCODAMOL [Concomitant]
     Active Substance: ACETAMINOPHEN\CODEINE PHOSPHATE
     Indication: Ill-defined disorder
     Dosage: 1-2 FOUR TIMES A DAY WHEN REQUIRED MAX 8 TABLET...
     Route: 065
     Dates: start: 20191218
  7. DERMOL [Concomitant]
     Active Substance: BENZALKONIUM CHLORIDE\CHLORHEXIDINE HYDROCHLORIDE\ISOPROPYL MYRISTATE\PARAFFIN
     Indication: Product used for unknown indication
     Dosage: USE AS A SOAP SUBSTITUTE FOR WASHING
     Route: 065
     Dates: start: 20201001
  8. CLOBETASOL [Concomitant]
     Active Substance: CLOBETASOL
     Indication: Ill-defined disorder
     Dosage: APPLY SPARINGLY TO AFFECTED AREA DAILY FOR 28 D...
     Route: 065
     Dates: start: 20220506
  9. DIAZEPAM [Concomitant]
     Active Substance: DIAZEPAM
     Indication: Ill-defined disorder
     Dosage: ONE THREE TIMES A DAY WHEN REQUIRED
     Route: 065
     Dates: start: 20210128
  10. DOSULEPIN HYDROCHLORIDE [Concomitant]
     Active Substance: DOTHIEPIN HYDROCHLORIDE
     Indication: Ill-defined disorder
     Dosage: 2 EVERY NIGHT
     Route: 065
     Dates: start: 20191218
  11. ESTRIOL [Concomitant]
     Active Substance: ESTRIOL
     Indication: Ill-defined disorder
     Dosage: INSERT ONE APPLICATORFUL IN TO THE VAGINA DAILY...
     Route: 065
     Dates: start: 20220105
  12. HYDROMOL CREAM [Concomitant]
     Indication: Product used for unknown indication
     Dosage: TO BE APPLIED TO HANDS AND LEGS AT LEAST TWICE ...
     Route: 065
     Dates: start: 20201001
  13. OMEPRAZOLE [Concomitant]
     Active Substance: OMEPRAZOLE
     Indication: Ill-defined disorder
     Dosage: TAKE TWO ONCE EVERY MORNING
     Route: 065
     Dates: start: 20210827
  14. TRIMETHOPRIM [Concomitant]
     Active Substance: TRIMETHOPRIM
     Indication: Ill-defined disorder
     Dosage: TAKE ONE TWICE DAILY
     Route: 065
     Dates: start: 20220328, end: 20220404
  15. ZOPICLONE [Concomitant]
     Active Substance: ZOPICLONE
     Indication: Ill-defined disorder
     Dosage: TAKE TWO AT NIGHT
     Route: 065
     Dates: start: 20210827

REACTIONS (1)
  - Dizziness [Recovered/Resolved]

NARRATIVE: CASE EVENT DATE: 20220524
